FAERS Safety Report 16925299 (Version 1)
Quarter: 2019Q4

REPORT INFORMATION
  Report Type: Spontaneous
  Country: US (occurrence: US)
  Receive Date: 20190823
  Receipt Date: 20190823
  Transmission Date: 20200122
  Serious: No
  Sender: FDA-Public Use
  Company Number: None

PATIENT
  Age: 71 Year
  Sex: Female
  Weight: 70 kg

DRUGS (4)
  1. ENSURE FOOD SUPPLEMENT [Concomitant]
  2. WALGREENS ARTIFICIAL TEARS LUBRICANT EYE DROPS [Suspect]
     Active Substance: DEXTRAN 70\HYPROMELLOSES
     Indication: OCULAR HYPERAEMIA
     Dosage: ?          OTHER STRENGTH:0.6 ML; 0.02OZ;?
     Route: 047
     Dates: start: 20181220, end: 201906
  3. WALGREENS ARTIFICIAL TEARS LUBRICANT EYE DROPS [Suspect]
     Active Substance: DEXTRAN 70\HYPROMELLOSES
     Indication: DRY EYE
     Dosage: ?          OTHER STRENGTH:0.6 ML; 0.02OZ;?
     Route: 047
     Dates: start: 20181220, end: 201906
  4. WALGREENS ARTIFICIAL TEARS LUBRICANT EYE DROPS [Suspect]
     Active Substance: DEXTRAN 70\HYPROMELLOSES
     Indication: EYE IRRITATION
     Dosage: ?          OTHER STRENGTH:0.6 ML; 0.02OZ;?
     Route: 047
     Dates: start: 20181220, end: 201906

REACTIONS (9)
  - Headache [None]
  - Ear infection [None]
  - Rosacea [None]
  - Erythema [None]
  - Eye pain [None]
  - Ocular hyperaemia [None]
  - Rash macular [None]
  - Vision blurred [None]
  - Ear congestion [None]

NARRATIVE: CASE EVENT DATE: 201812
